FAERS Safety Report 11648276 (Version 1)
Quarter: 2015Q4

REPORT INFORMATION
  Report Type: Spontaneous
  Country: US (occurrence: None)
  Receive Date: 20151020
  Receipt Date: 20151020
  Transmission Date: 20160304
  Serious: Yes (Life-Threatening, Hospitalization)
  Sender: FDA-Public Use
  Company Number: None

PATIENT
  Age: 79 Year
  Sex: Male
  Weight: 46.3 kg

DRUGS (1)
  1. CEFOTETAN [Suspect]
     Active Substance: CEFOTETAN DISODIUM
     Indication: PNEUMONIA ASPIRATION
     Route: 042
     Dates: start: 20151001, end: 20151007

REACTIONS (3)
  - Coombs direct test positive [None]
  - Haemoglobin decreased [None]
  - Drug specific antibody present [None]

NARRATIVE: CASE EVENT DATE: 20151013
